FAERS Safety Report 9645292 (Version 2)
Quarter: 2014Q1

REPORT INFORMATION
  Report Type: Spontaneous
  Country: FR (occurrence: FR)
  Receive Date: 20131025
  Receipt Date: 20140108
  Transmission Date: 20141002
  Serious: Yes (Other)
  Sender: FDA-Public Use
  Company Number: FR-SA-2013SA102689

PATIENT
  Sex: 0

DRUGS (3)
  1. FASTURTEC [Suspect]
     Indication: LYMPHOMA
     Dosage: STRENGTH: 75 MG/5ML
     Route: 042
     Dates: start: 201310, end: 201310
  2. FASTURTEC [Suspect]
     Indication: LYMPHOMA
     Dosage: STRENGTH: 1.5MG/1ML
     Route: 042
     Dates: start: 201310, end: 201310
  3. FASTURTEC [Suspect]
     Indication: LYMPHOMA
     Dosage: STRENGTH: 1.5MG/1ML
     Route: 042
     Dates: start: 201310, end: 201310

REACTIONS (2)
  - Blood uric acid increased [Recovered/Resolved]
  - Drug ineffective [Unknown]
